FAERS Safety Report 10886918 (Version 1)
Quarter: 2015Q1

REPORT INFORMATION
  Report Type: Spontaneous
  Country: US (occurrence: US)
  Receive Date: 20150304
  Receipt Date: 20150304
  Transmission Date: 20150721
  Serious: No
  Sender: FDA-Public Use
  Company Number: US-PFIZER INC-2015073802

PATIENT
  Age: 77 Year
  Sex: Male
  Weight: 100 kg

DRUGS (3)
  1. LYRICA [Suspect]
     Active Substance: PREGABALIN
     Dosage: 150 MG, 3X/DAY
     Route: 048
     Dates: start: 20150219, end: 20150221
  2. LYRICA [Suspect]
     Active Substance: PREGABALIN
     Dosage: 75 MG, 3X/DAY
     Route: 048
     Dates: start: 20150222, end: 20150224
  3. LYRICA [Suspect]
     Active Substance: PREGABALIN
     Indication: DIABETIC NEUROPATHY
     Dosage: 75 MG, 3X/DAY
     Route: 048
     Dates: start: 20150212, end: 20150218

REACTIONS (9)
  - Balance disorder [Unknown]
  - Memory impairment [Unknown]
  - Muscular weakness [Unknown]
  - Drug effect incomplete [Unknown]
  - Wound secretion [Unknown]
  - Peripheral swelling [Unknown]
  - Cognitive disorder [Recovering/Resolving]
  - Feeling drunk [Unknown]
  - Somnolence [Unknown]

NARRATIVE: CASE EVENT DATE: 201502
